FAERS Safety Report 8796167 (Version 3)
Quarter: 2012Q4

REPORT INFORMATION
  Report Type: 
  Country: US (occurrence: US)
  Receive Date: 20120920
  Receipt Date: 20121026
  Transmission Date: 20130627
  Serious: Yes (Disabling, Other)
  Sender: FDA-Public Use
  Company Number: US-PFIZER INC-2012231590

PATIENT
  Age: 45 Year
  Sex: Male

DRUGS (4)
  1. LIPITOR [Suspect]
     Indication: HYPERLIPIDAEMIA
     Dosage: 10 mg, daily for a few months a year
     Route: 048
  2. WARFARIN [Concomitant]
     Indication: DEEP VEIN THROMBOSIS
     Dosage: 3 mg, daily on and off
     Dates: start: 200611
  3. PLAVIX [Concomitant]
     Dosage: UNK
  4. MINOCIN [Concomitant]
     Dosage: UNK

REACTIONS (9)
  - Gangrene [Unknown]
  - Gangrene [Unknown]
  - Impaired healing [Not Recovered/Not Resolved]
  - Peripheral arterial occlusive disease [Unknown]
  - Deep vein thrombosis [Unknown]
  - Intermittent claudication [Unknown]
  - Arteriosclerosis [Unknown]
  - Peripheral ischaemia [Unknown]
  - Liver function test abnormal [Unknown]
